FAERS Safety Report 11813529 (Version 4)
Quarter: 2016Q1

REPORT INFORMATION
  Report Type: Spontaneous
  Country: US (occurrence: US)
  Receive Date: 20151209
  Receipt Date: 20160128
  Transmission Date: 20160525
  Serious: Yes (Other)
  Sender: FDA-Public Use
  Company Number: US-BAYER-2015-483652

PATIENT
  Age: 32 Year
  Sex: Female
  Weight: 58.96 kg

DRUGS (2)
  1. MIRENA [Suspect]
     Active Substance: LEVONORGESTREL
     Indication: CONTRACEPTION
     Dosage: 20 MCG/24HR, CONT
     Route: 015
     Dates: start: 20151123, end: 20151123
  2. MIRENA [Suspect]
     Active Substance: LEVONORGESTREL
     Indication: CONTRACEPTION
     Dosage: 20 MCG/24HR, CONT
     Route: 015
     Dates: start: 20151207, end: 20151207

REACTIONS (6)
  - Embedded device [Recovered/Resolved]
  - Embedded device [Recovered/Resolved]
  - Device difficult to use [None]
  - Device difficult to use [None]
  - Complication of device insertion [None]
  - Complication of device insertion [None]

NARRATIVE: CASE EVENT DATE: 20151123
